FAERS Safety Report 21913378 (Version 1)
Quarter: 2023Q1

REPORT INFORMATION
  Report Type: Spontaneous
  Country: US (occurrence: US)
  Receive Date: 20230125
  Receipt Date: 20230125
  Transmission Date: 20230417
  Serious: No
  Sender: FDA-Public Use
  Company Number: US-ALLERGAN-2236832US

PATIENT
  Sex: Male

DRUGS (12)
  1. BOTOX [Suspect]
     Active Substance: ONABOTULINUMTOXINA
     Indication: Dystonia
     Dosage: 100 UNITS, SINGLE
     Dates: start: 20220210, end: 20220210
  2. SINEMET [Concomitant]
     Active Substance: CARBIDOPA\LEVODOPA
     Dosage: UNK, TID, 25-100 MG
     Route: 048
  3. RYTARY [Concomitant]
     Active Substance: CARBIDOPA\LEVODOPA
     Dosage: 23.75-95 MG, TAKEN WITH OR WITHOUT FOOD; DO NOT CHEW, DIVIDE OR CRUSH
     Route: 048
  4. SYMMETREL [Concomitant]
     Active Substance: AMANTADINE HYDROCHLORIDE
     Dosage: 100 MG, BID,1 CAP X 2 WEEKS IN THE AM, THEN INCREASE 1 IN THE AM AND 1 AT NOON
     Route: 048
  5. COMTAN [Concomitant]
     Active Substance: ENTACAPONE
     Dosage: 200 MG, TID, START 1/2 TAB 3/DAY WITH CARBIDOPA/LEVODOPA DOSE, AND THEN INCREASE TO 1 TAB 3X/DAY AS
     Route: 048
  6. ELDEPRYL [Concomitant]
     Active Substance: SELEGILINE HYDROCHLORIDE
     Dosage: 5 MG, BID, 1 CAPSULE IN AM AND 1 CAPSULE AT NOON
     Route: 048
  7. XARELTO [Concomitant]
     Active Substance: RIVAROXABAN
     Dosage: 10 MG, DAILY
     Route: 048
  8. HYDROCHLOROTHIAZIDE\TRIAMTERENE [Concomitant]
     Active Substance: HYDROCHLOROTHIAZIDE\TRIAMTERENE
     Dosage: 37.5-25 MG
     Route: 048
  9. FISH OIL\OMEGA-3 FATTY ACIDS [Concomitant]
     Active Substance: FISH OIL\OMEGA-3 FATTY ACIDS
     Dosage: 360-1,200 MG
     Route: 048
  10. VITAMIN D3 [Concomitant]
     Active Substance: CHOLECALCIFEROL
     Dosage: 1000 UNITS
     Route: 048
  11. VITAMINS NOS [Concomitant]
     Active Substance: VITAMINS
     Route: 048
  12. BALANCED B-50 COMPLEX [Concomitant]
     Dosage: UNK, QD
     Route: 048

REACTIONS (2)
  - Off label use [Unknown]
  - Drug ineffective for unapproved indication [Unknown]

NARRATIVE: CASE EVENT DATE: 20220101
